FAERS Safety Report 15934088 (Version 2)
Quarter: 2020Q1

REPORT INFORMATION
  Report Type: Spontaneous
  Country: CH (occurrence: CH)
  Receive Date: 20190207
  Receipt Date: 20200313
  Transmission Date: 20200409
  Serious: Yes (Hospitalization, Other)
  Sender: FDA-Public Use
  Company Number: CH-ELI_LILLY_AND_COMPANY-CH201901015361

PATIENT
  Sex: Male

DRUGS (32)
  1. PURSANA [Concomitant]
     Active Substance: FIG FRUIT OIL\SORBITOL
     Dosage: UNK
  2. BIPERIDEN [Concomitant]
     Active Substance: BIPERIDEN
     Dosage: AS NECESSARY
  3. NICORETTE INALADOR [Concomitant]
     Dosage: AS NECESSARY
  4. TEMESTA EXPIDET [Suspect]
     Active Substance: LORAZEPAM
     Dosage: UNK UNK, UNKNOWN
     Route: 048
     Dates: start: 20190219, end: 201904
  5. LITHIUM CARBONATE. [Suspect]
     Active Substance: LITHIUM CARBONATE
     Indication: PRODUCT USED FOR UNKNOWN INDICATION
     Dosage: 16.2 MMOL, EACH MORNING
     Route: 048
     Dates: start: 2006, end: 20190122
  6. LITHIUM CARBONATE. [Suspect]
     Active Substance: LITHIUM CARBONATE
     Dosage: 5.4 MMOL, BID
     Route: 048
     Dates: start: 20190211, end: 20190225
  7. CO-DAFALGAN [Concomitant]
     Active Substance: ACETAMINOPHEN\CODEINE PHOSPHATE
     Dosage: UNK
  8. EUTHYROX [Concomitant]
     Active Substance: LEVOTHYROXINE SODIUM
     Dosage: UNK
  9. ANGINA MCC [Concomitant]
     Active Substance: CETYLPYRIDINIUM CHLORIDE\LEVOMENTHOL\LIDOCAINE HYDROCHLORIDE
     Dosage: AS NECESSARY
  10. TORA-DOL [Concomitant]
     Active Substance: KETOROLAC TROMETHAMINE
     Dosage: AS NECESSARY
  11. MAGALDRATE [Concomitant]
     Active Substance: MAGALDRATE
     Dosage: AS NECESSARY
  12. SALBUTAMOL [Concomitant]
     Active Substance: ALBUTEROL
     Dosage: AS NECESSARY
  13. TEMESTA EXPIDET [Suspect]
     Active Substance: LORAZEPAM
     Dosage: 10 MG, DAILY
     Route: 048
     Dates: start: 20190205, end: 20190219
  14. LAXOBERON [Concomitant]
     Active Substance: SODIUM PICOSULFATE
     Dosage: UNK
  15. EXCIPIAL U [Concomitant]
     Active Substance: UREA
     Dosage: UNK
  16. URISPAS [Concomitant]
     Active Substance: FLAVOXATE HYDROCHLORIDE
     Dosage: AS NECESSARY
  17. ZYPREXA [Suspect]
     Active Substance: OLANZAPINE
     Dosage: 15 MG, DAILY
     Route: 048
     Dates: start: 20190109
  18. LITHIUM CARBONATE. [Suspect]
     Active Substance: LITHIUM CARBONATE
     Dosage: UNK UNK, UNKNOWN
     Route: 048
     Dates: start: 20190122, end: 20190209
  19. ENTUMINE [Concomitant]
     Active Substance: CLOTHIAPINE
     Dosage: UNK UNK, UNKNOWN
     Route: 048
     Dates: start: 20181123
  20. ESOMEPRAZOLE MAGNESIUM. [Concomitant]
     Active Substance: ESOMEPRAZOLE MAGNESIUM
     Dosage: UNK
  21. ULTIBRO BREEZHALER [Concomitant]
     Active Substance: GLYCOPYRRONIUM\INDACATEROL
     Dosage: UNK
  22. ZYPREXA [Suspect]
     Active Substance: OLANZAPINE
     Indication: PRODUCT USED FOR UNKNOWN INDICATION
     Dosage: UNK UNK, UNKNOWN
     Route: 065
     Dates: end: 20181123
  23. LITHIUM CARBONATE. [Suspect]
     Active Substance: LITHIUM CARBONATE
     Dosage: 10.8 MMOL, EACH EVENING
     Route: 048
     Dates: start: 2006, end: 20190122
  24. TEMESTA EXPIDET [Suspect]
     Active Substance: LORAZEPAM
     Dosage: 4.5 MG, DAILY
     Route: 048
     Dates: start: 20190128, end: 20190205
  25. ENTUMINE [Concomitant]
     Active Substance: CLOTHIAPINE
     Dosage: 40 MG, DAILY
     Route: 048
     Dates: start: 20181226, end: 20190104
  26. ZYPREXA [Suspect]
     Active Substance: OLANZAPINE
     Dosage: 10 MG, DAILY
     Route: 048
     Dates: start: 20190104, end: 20190109
  27. LITHIUM CARBONATE. [Suspect]
     Active Substance: LITHIUM CARBONATE
     Dosage: 5.4 MMOL, DAILY
     Route: 048
     Dates: start: 20190226
  28. TEMESTA EXPIDET [Suspect]
     Active Substance: LORAZEPAM
     Indication: PRODUCT USED FOR UNKNOWN INDICATION
     Dosage: 7.5 MG, DAILY
     Route: 048
     Dates: start: 20181122, end: 20190128
  29. TEMESTA EXPIDET [Suspect]
     Active Substance: LORAZEPAM
     Dosage: 2 MG, DAILY
     Route: 048
     Dates: start: 201904
  30. DALMADORM [Concomitant]
     Active Substance: FLURAZEPAM HYDROCHLORIDE
     Dosage: UNK
  31. MOVCOL [Concomitant]
     Dosage: UNK
  32. BIPERIDEN [Concomitant]
     Active Substance: BIPERIDEN
     Dosage: AS NECESSARY
     Dates: start: 20190122, end: 20190220

REACTIONS (8)
  - Malignant neoplasm progression [Unknown]
  - Treatment noncompliance [Unknown]
  - Decreased appetite [Unknown]
  - Parkinsonism [Recovering/Resolving]
  - Weight decreased [Unknown]
  - Salivary hypersecretion [Not Recovered/Not Resolved]
  - Asthenia [Unknown]
  - Cognitive disorder [Recovering/Resolving]
